FAERS Safety Report 9486525 (Version 1)
Quarter: 2013Q3

REPORT INFORMATION
  Report Type: Spontaneous
  Country: US (occurrence: None)
  Receive Date: 20130827
  Receipt Date: 20130827
  Transmission Date: 20140515
  Serious: Yes (Disabling, Other)
  Sender: FDA-Public Use
  Company Number: ACO_38002_2013

PATIENT
  Sex: Female
  Weight: 73.5 kg

DRUGS (8)
  1. AMPYRA [Suspect]
     Indication: GAIT DISTURBANCE
     Route: 048
     Dates: end: 2013
  2. AMPYRA [Suspect]
     Indication: MULTIPLE SCLEROSIS
     Route: 048
     Dates: end: 2013
  3. GABAPENTIN (GABAPENTIN) [Concomitant]
  4. LEXAPRO (ESCITALOPRAM OXALATE) [Concomitant]
  5. OMEPRAZOLE (OMEPRAZOLE) [Concomitant]
  6. DETROL (TOLTERODINE I-TARTRATE) [Concomitant]
  7. PREDNISONE (PREDNISONE) [Concomitant]
  8. TECFIDERA (DIMETHYL FUMARATE) [Concomitant]

REACTIONS (5)
  - Abasia [None]
  - Hypokinesia [None]
  - Gait disturbance [None]
  - Muscular weakness [None]
  - Fall [None]
